FAERS Safety Report 6109982-3 (Version None)
Quarter: 2009Q1

REPORT INFORMATION
  Report Type: 
  Country: None (occurrence: None)
  Receive Date: 20090310
  Receipt Date: 20081024
  Transmission Date: 20090719
  Serious: No
  Sender: FDA-Public Use
  Company Number: A0753472A

PATIENT
  Age: 45 Year
  Sex: Female

DRUGS (1)
  1. NICORETTE [Suspect]
     Dates: start: 20081019, end: 20081019

REACTIONS (4)
  - DECREASED IMMUNE RESPONSIVENESS [None]
  - HEART RATE INCREASED [None]
  - NICOTINE DEPENDENCE [None]
  - PSYCHOMOTOR HYPERACTIVITY [None]
